FAERS Safety Report 19514857 (Version 1)
Quarter: 2021Q3

REPORT INFORMATION
  Report Type: Spontaneous
  Country: US (occurrence: US)
  Receive Date: 20210709
  Receipt Date: 20210709
  Transmission Date: 20211014
  Serious: Yes (Other)
  Sender: FDA-Public Use
  Company Number: US-ENDO PHARMACEUTICALS INC-2021-004280

PATIENT
  Age: 62 Year
  Sex: Female

DRUGS (4)
  1. RANITIDINE. [Suspect]
     Active Substance: RANITIDINE
     Indication: GASTRIC DISORDER
     Dosage: 150 MG, DAILY
     Route: 065
     Dates: start: 201003, end: 202003
  2. RANITIDINE HYDROCHLORIDE. [Suspect]
     Active Substance: RANITIDINE HYDROCHLORIDE
     Indication: GASTRIC DISORDER
     Dosage: 150 MG, DAILY
     Route: 065
     Dates: start: 201003, end: 202003
  3. ZANTAC [Suspect]
     Active Substance: RANITIDINE HYDROCHLORIDE
     Indication: GASTRIC DISORDER
     Dosage: 150 MG, DAILY
     Route: 065
     Dates: start: 201003, end: 202003
  4. ZANTAC [Suspect]
     Active Substance: RANITIDINE HYDROCHLORIDE
     Indication: GASTRIC DISORDER
     Dosage: 150 MG, DAILY
     Route: 065
     Dates: start: 201003, end: 202003

REACTIONS (1)
  - Breast cancer stage IV [Recovering/Resolving]

NARRATIVE: CASE EVENT DATE: 20170301
